FAERS Safety Report 9149221 (Version 1)
Quarter: 2013Q1

REPORT INFORMATION
  Report Type: Spontaneous
  Country: JP (occurrence: None)
  Receive Date: 20130131
  Receipt Date: 20130131
  Transmission Date: 20140127
  Serious: No
  Sender: FDA-Public Use
  Company Number: 2013SP001137

PATIENT
  Age: 44 Year
  Sex: Female

DRUGS (4)
  1. FLUOROURACIL (FLUOROURACIL) [Suspect]
     Indication: RECTAL CANCER METASTATIC
  2. IRINOTECAN [Concomitant]
  3. FOLINIC ACID [Concomitant]
  4. BEVACIZUMAB [Concomitant]

REACTIONS (6)
  - Pyrexia [None]
  - Depressed level of consciousness [None]
  - Hyperammonaemia [None]
  - Renal impairment [None]
  - Chills [None]
  - Haemodialysis [None]
